FAERS Safety Report 19071421 (Version 1)
Quarter: 2021Q1

REPORT INFORMATION
  Report Type: Spontaneous
  Country: US (occurrence: US)
  Receive Date: 20210330
  Receipt Date: 20210330
  Transmission Date: 20210420
  Serious: No
  Sender: FDA-Public Use
  Company Number: US-SA-2021SA101647

PATIENT
  Sex: Female

DRUGS (22)
  1. ZOFRAN [Concomitant]
     Active Substance: ONDANSETRON HYDROCHLORIDE
  2. CODEINE PHOSPHATE [Concomitant]
     Active Substance: CODEINE PHOSPHATE
  3. PENICILLIN [PENICILLIN NOS] [Concomitant]
     Active Substance: PENICILLIN
  4. ACETAMINOPHEN. [Concomitant]
     Active Substance: ACETAMINOPHEN
  5. IBUPROFEN. [Concomitant]
     Active Substance: IBUPROFEN
  6. BUPROPION. [Concomitant]
     Active Substance: BUPROPION
  7. LIDOCAINE. [Concomitant]
     Active Substance: LIDOCAINE
  8. TRAMADOL. [Concomitant]
     Active Substance: TRAMADOL
  9. CITALOPRAM [Concomitant]
     Active Substance: CITALOPRAM HYDROBROMIDE
  10. ALBUTEROL [SALBUTAMOL] [Concomitant]
     Active Substance: ALBUTEROL
  11. LUMIZYME [Suspect]
     Active Substance: ALGLUCOSIDASE ALFA
     Indication: GLYCOGEN STORAGE DISEASE TYPE II
     Route: 042
     Dates: start: 20201118
  12. IODINE. [Concomitant]
     Active Substance: IODINE
  13. HEPARIN [Concomitant]
     Active Substance: HEPARIN SODIUM
  14. METOPROLOL. [Concomitant]
     Active Substance: METOPROLOL
  15. LORATADINE. [Concomitant]
     Active Substance: LORATADINE
  16. LORAZEPAM. [Concomitant]
     Active Substance: LORAZEPAM
  17. KLOR?CON [Concomitant]
     Active Substance: POTASSIUM CHLORIDE
  18. HYDROCHLOROTHIAZIDE. [Concomitant]
     Active Substance: HYDROCHLOROTHIAZIDE
  19. NORMAL SALINE [Concomitant]
     Active Substance: SODIUM CHLORIDE
  20. EPINEPHRINE. [Concomitant]
     Active Substance: EPINEPHRINE
  21. DIPHENHYDRAMINE. [Concomitant]
     Active Substance: DIPHENHYDRAMINE
  22. ASPIRIN [ACETYLSALICYLIC ACID] [Concomitant]
     Active Substance: ASPIRIN

REACTIONS (2)
  - Pain in extremity [Unknown]
  - Headache [Unknown]
